FAERS Safety Report 13170115 (Version 2)
Quarter: 2017Q1

REPORT INFORMATION
  Report Type: Spontaneous
  Country: IT (occurrence: IT)
  Receive Date: 20170201
  Receipt Date: 20170210
  Transmission Date: 20170428
  Serious: Yes (Other)
  Sender: FDA-Public Use
  Company Number: IT-ROCHE-1878091

PATIENT
  Age: 77 Year
  Sex: Female
  Weight: 87 kg

DRUGS (1)
  1. ACTILYSE [Suspect]
     Active Substance: ALTEPLASE
     Indication: ISCHAEMIC STROKE
     Route: 042
     Dates: start: 20170107, end: 20170107

REACTIONS (3)
  - Motor dysfunction [Recovering/Resolving]
  - Angioedema [Recovered/Resolved]
  - Ischaemia [Recovering/Resolving]

NARRATIVE: CASE EVENT DATE: 20170107
